FAERS Safety Report 5294718-9 (Version None)
Quarter: 2007Q2

REPORT INFORMATION
  Report Type: 
  Country: None (occurrence: None)
  Receive Date: 20070409
  Receipt Date: 20070409
  Transmission Date: 20071010
  Serious: Yes (Other)
  Sender: FDA-Public Use
  Company Number: None

PATIENT
  Age: 48 Year
  Sex: Female
  Weight: 62.5964 kg

DRUGS (1)
  1. MONISTAT 3 COMBINATION PACK [Suspect]
     Indication: FUNGAL INFECTION
     Dosage: 3 DAY
     Dates: start: 20070329, end: 20070331

REACTIONS (5)
  - BLISTER [None]
  - BURNING SENSATION [None]
  - PAIN [None]
  - PRURITUS [None]
  - SOFT TISSUE INJURY [None]
